FAERS Safety Report 10260139 (Version 1)
Quarter: 2014Q2

REPORT INFORMATION
  Report Type: Spontaneous
  Country: US (occurrence: US)
  Receive Date: 20140625
  Receipt Date: 20140625
  Transmission Date: 20141212
  Serious: No
  Sender: FDA-Public Use
  Company Number: US-BAUSCH-BL-2013-003981

PATIENT
  Age: 27 Year
  Sex: Male

DRUGS (1)
  1. GENTAMICIN SULFATE OPHTHALMIC SOLUTION USP 0.3% [Suspect]
     Indication: CORNEAL ABRASION
     Dosage: 1 DROP; EVERY 4 HOURS; RIGHT EYE
     Route: 047
     Dates: start: 20130622

REACTIONS (4)
  - Off label use [Recovering/Resolving]
  - Accidental overdose [Recovering/Resolving]
  - Eye swelling [Recovering/Resolving]
  - Vision blurred [Recovering/Resolving]
